FAERS Safety Report 20785233 (Version 1)
Quarter: 2022Q2

REPORT INFORMATION
  Report Type: Spontaneous
  Country: US (occurrence: None)
  Receive Date: 20220504
  Receipt Date: 20220504
  Transmission Date: 20220721
  Serious: Yes (unspecified)
  Sender: FDA-Public Use
  Company Number: None

PATIENT
  Age: 20 Year
  Sex: Female
  Weight: 140.8 kg

DRUGS (2)
  1. BEBTELOVIMAB [Suspect]
     Active Substance: BEBTELOVIMAB
     Indication: COVID-19
     Dosage: FREQUENCY : ONCE;?
     Route: 040
     Dates: start: 20220504, end: 20220504
  2. diphenhydramine 50 mg [Concomitant]
     Dates: start: 20220504, end: 20220504

REACTIONS (2)
  - Chest discomfort [None]
  - Flushing [None]

NARRATIVE: CASE EVENT DATE: 20220504
